FAERS Safety Report 8238166 (Version 4)
Quarter: 2013Q2

REPORT INFORMATION
  Report Type: Spontaneous
  Country: JP (occurrence: JP)
  Receive Date: 20111109
  Receipt Date: 20130402
  Transmission Date: 20140414
  Serious: Yes (Hospitalization)
  Sender: FDA-Public Use
  Company Number: PHHY2011JP097137

PATIENT
  Sex: Male

DRUGS (4)
  1. CARBAMAZEPINE [Suspect]
     Indication: TRIGEMINAL NEURALGIA
     Dosage: 500 MG, DAILY
     Route: 048
  2. CARBAMAZEPINE [Suspect]
     Dosage: 300 MG, DAILY
     Route: 048
  3. BACLOFEN [Suspect]
     Dosage: 45 MG, DAILY
     Route: 048
     Dates: end: 20110615
  4. GABAPENTIN [Concomitant]
     Dosage: 1200 MG, DAILY
     Route: 048
     Dates: start: 20110524

REACTIONS (8)
  - Lacunar infarction [Recovered/Resolved]
  - Putamen haemorrhage [Recovered/Resolved]
  - Dehydration [Unknown]
  - Decreased appetite [Recovered/Resolved]
  - Dizziness [Recovered/Resolved]
  - Muscular weakness [Recovered/Resolved]
  - Vomiting [Recovered/Resolved]
  - Drug ineffective [Unknown]
